FAERS Safety Report 9366660 (Version 2)
Quarter: 2013Q3

REPORT INFORMATION
  Report Type: Spontaneous
  Country: US (occurrence: US)
  Receive Date: 20130625
  Receipt Date: 20130702
  Transmission Date: 20140515
  Serious: Yes (Other)
  Sender: FDA-Public Use
  Company Number: US-PERRIGO-13US006403

PATIENT
  Age: 3 Year
  Sex: Female
  Weight: 20.41 kg

DRUGS (1)
  1. IBUPROFEN 20 MG/ML CHILD BERRY 897 [Suspect]
     Indication: PYREXIA
     Dosage: 100 MG, SINGLE
     Route: 048
     Dates: start: 20120222, end: 20120222

REACTIONS (2)
  - Urticaria [Recovered/Resolved]
  - Swelling [Recovered/Resolved]
